FAERS Safety Report 9931239 (Version 1)
Quarter: 2014Q1

REPORT INFORMATION
  Report Type: Report from Study
  Country: US (occurrence: US)
  Receive Date: 20140228
  Receipt Date: 20140228
  Transmission Date: 20141002
  Serious: Yes (Death)
  Sender: FDA-Public Use
  Company Number: US-ROCHE-1334515

PATIENT
  Age: 55 Year
  Sex: Female
  Weight: 97.16 kg

DRUGS (11)
  1. AVASTIN [Suspect]
     Indication: BRAIN NEOPLASM
     Dosage: 10 MG/KG
     Route: 040
  2. AVASTIN [Suspect]
     Indication: GLIOBLASTOMA MULTIFORME
  3. XELODA [Suspect]
     Indication: GLIOBLASTOMA MULTIFORME
     Route: 048
  4. HYDROCORTISONE SODIUM SUCCINATE [Concomitant]
  5. METHYLPREDNISOLONE SODIUM SUCCINATE [Concomitant]
  6. DEXAMETHASONE SODIUM PHOSPHATE [Concomitant]
     Route: 042
  7. DIPHENHYDRAMINE HCL [Concomitant]
     Route: 042
  8. TYLENOL [Concomitant]
  9. ZOFRAN [Concomitant]
     Route: 048
  10. BACTRIM DS [Concomitant]
     Route: 048
  11. ZOLOFT [Concomitant]
     Route: 048

REACTIONS (12)
  - Disease progression [Fatal]
  - Malaise [Unknown]
  - Fatigue [Unknown]
  - Constipation [Unknown]
  - Rectal fissure [Unknown]
  - Paraesthesia [Unknown]
  - Abdominal pain [Unknown]
  - Chest pain [Unknown]
  - Haemorrhoids [Unknown]
  - Visual field defect [Unknown]
  - Visual field defect [Unknown]
  - Elevated mood [Unknown]
